FAERS Safety Report 7584132-5 (Version None)
Quarter: 2011Q2

REPORT INFORMATION
  Report Type: 
  Country: None (occurrence: None)
  Receive Date: 20110630
  Receipt Date: 20110628
  Transmission Date: 20111010
  Serious: Yes (Disabling, Other)
  Sender: FDA-Public Use
  Company Number: US-PFIZER INC-2011144818

PATIENT
  Sex: Female
  Weight: 72.562 kg

DRUGS (4)
  1. PROZAC [Concomitant]
     Indication: HORMONE THERAPY
     Dosage: 40 MG, DAILY
  2. PERCOCET [Concomitant]
     Indication: PAIN
     Dosage: 7.5 MG, EVERY 4 HRS
     Dates: start: 20100101
  3. VFEND [Suspect]
     Indication: MENINGITIS
     Dosage: 200 MG, 2X/DAY
     Route: 048
     Dates: start: 20110601, end: 20110601
  4. SYNTHROID [Concomitant]
     Indication: THYROID DISORDER
     Dosage: 0.137 MG, DAILY

REACTIONS (5)
  - ACTIVITIES OF DAILY LIVING IMPAIRED [None]
  - BURNING SENSATION [None]
  - NAUSEA [None]
  - VISION BLURRED [None]
  - FEELING HOT [None]
